FAERS Safety Report 22762312 (Version 5)
Quarter: 2023Q4

REPORT INFORMATION
  Report Type: Spontaneous
  Country: BR (occurrence: BR)
  Receive Date: 20230728
  Receipt Date: 20231006
  Transmission Date: 20240110
  Serious: Yes (Hospitalization, Other)
  Sender: FDA-Public Use
  Company Number: BR-SA-SAC20230726000037

PATIENT
  Age: 2 Year
  Sex: Male
  Weight: 15 kg

DRUGS (6)
  1. SABRIL [Suspect]
     Active Substance: VIGABATRIN
     Indication: Seizure
     Dosage: 2 DF, BID (2 IN THE MORNING AND 2 IN THE EVENING)
     Route: 065
     Dates: start: 2021
  2. SABRIL [Suspect]
     Active Substance: VIGABATRIN
     Indication: Infantile spasms
     Dosage: 2 DF, TID
     Route: 065
  3. SABRIL [Suspect]
     Active Substance: VIGABATRIN
     Indication: Hyperglycinaemia
     Route: 065
  4. OXCARBAZEPINE [Concomitant]
     Active Substance: OXCARBAZEPINE
     Indication: Infantile spasms
     Dosage: 2 DF, Q12H
     Route: 065
  5. PHENOBARBITAL [Concomitant]
     Active Substance: PHENOBARBITAL
     Indication: Seizure
     Dosage: 2 DF, Q12H
     Route: 065
  6. LEVETIRACETAM [Concomitant]
     Active Substance: LEVETIRACETAM
     Indication: Seizure
     Dosage: 2 DF, BID
     Route: 065

REACTIONS (13)
  - Muscle spasms [Recovering/Resolving]
  - Hypotonia [Recovering/Resolving]
  - Heart rate increased [Recovering/Resolving]
  - Apnoea [Recovering/Resolving]
  - Condition aggravated [Recovering/Resolving]
  - Oxygen saturation decreased [Recovering/Resolving]
  - Seizure [Recovering/Resolving]
  - Product contamination [Recovering/Resolving]
  - Tremor [Recovering/Resolving]
  - Somnolence [Not Recovered/Not Resolved]
  - Dyspnoea [Recovering/Resolving]
  - Respiratory failure [Recovering/Resolving]
  - Cough [Not Recovered/Not Resolved]

NARRATIVE: CASE EVENT DATE: 20230101
